FAERS Safety Report 22057311 (Version 1)
Quarter: 2023Q1

REPORT INFORMATION
  Report Type: Spontaneous
  Country: US (occurrence: US)
  Receive Date: 20230303
  Receipt Date: 20230303
  Transmission Date: 20230417
  Serious: Yes (Other)
  Sender: FDA-Public Use
  Company Number: US-GLAXOSMITHKLINE-USCH2023AMR008689

PATIENT

DRUGS (1)
  1. OCTINOXATE\OCTISALATE\OCTOCRYLENE\OXYBENZONE\PETROLATUM [Suspect]
     Active Substance: OCTINOXATE\OCTISALATE\OCTOCRYLENE\OXYBENZONE\PETROLATUM
     Indication: Product used for unknown indication
     Dosage: UNK

REACTIONS (1)
  - Myelodysplastic syndrome [Unknown]
